FAERS Safety Report 4958078-2 (Version None)
Quarter: 2006Q1

REPORT INFORMATION
  Report Type: 
  Country: None (occurrence: None)
  Receive Date: 20060330
  Receipt Date: 20050516
  Transmission Date: 20060701
  Serious: Yes (Death)
  Sender: FDA-Public Use
  Company Number: US-MERCK-0505USA01970

PATIENT
  Age: 36 Year
  Sex: Male

DRUGS (3)
  1. VIOXX [Suspect]
     Indication: NECK PAIN
     Route: 048
     Dates: start: 20020221, end: 20030508
  2. TYLENOL (CAPLET) [Concomitant]
     Route: 065
  3. ADVIL [Concomitant]
     Route: 065

REACTIONS (2)
  - CARDIAC ARREST [None]
  - EMOTIONAL DISORDER [None]
